FAERS Safety Report 9837066 (Version 2)
Quarter: 2014Q2

REPORT INFORMATION
  Report Type: Spontaneous
  Country: US (occurrence: None)
  Receive Date: 20131205
  Receipt Date: 20140416
  Transmission Date: 20141212
  Serious: No
  Sender: FDA-Public Use
  Company Number: 163-POMAL-13083489

PATIENT
  Age: 78 Year
  Sex: Male

DRUGS (18)
  1. POMALYST [Suspect]
     Indication: PLASMA CELL MYELOMA
     Dosage: 3 MG, 21 IN 28 D, PO
     Route: 048
     Dates: start: 20130809, end: 20130819
  2. COUMADIN (WARFARIN SODIUM) [Concomitant]
  3. MELPHALAN (MELPHALAN) [Concomitant]
  4. PREDNISONE (PREDNISONE) [Concomitant]
  5. ZOMETA (ZOLEDRONIC ACID) [Concomitant]
  6. PRADAXA (DABIGATRAN ETEXILATE MESILATE) [Concomitant]
  7. ALLOPURINOL (ALLOPURINOL) [Concomitant]
  8. MVI (MVI) [Concomitant]
  9. LISINOPRIL (LISINOPRIL) [Concomitant]
  10. SPIRIVA [Concomitant]
  11. CALCIUM WITH VITAMIN D (CALCIUM WITH VITAMIN D) [Concomitant]
  12. TYLENOL (PARACETAMOL) [Concomitant]
  13. SIMVASTATIN (SIMVASTATIN) [Concomitant]
  14. OMEGA 3 FISH OIL (FISH OIL) [Concomitant]
  15. ALKERAN (MELPHALAN) [Concomitant]
  16. OMNICEF (CEFDINIR) [Concomitant]
  17. TESSALON (BENZONATATE) [Concomitant]
  18. LEVAQUIN (LEVOFLOXACIN) [Concomitant]

REACTIONS (3)
  - Psoriasis [None]
  - Memory impairment [None]
  - Rash [None]
